FAERS Safety Report 4772402-5 (Version None)
Quarter: 2005Q3

REPORT INFORMATION
  Report Type: 
  Country: None (occurrence: None)
  Receive Date: 20050919
  Receipt Date: 20050531
  Transmission Date: 20060218
  Serious: No
  Sender: FDA-Public Use
  Company Number: US-BRISTOL-MYERS SQUIBB COMPANY-12988358

PATIENT

DRUGS (1)
  1. KENALOG-40 [Suspect]
     Indication: MULTIPLE ALLERGIES

REACTIONS (1)
  - DRUG INEFFECTIVE [None]
